FAERS Safety Report 16259369 (Version 2)
Quarter: 2019Q2

REPORT INFORMATION
  Report Type: Spontaneous
  Country: GB (occurrence: GB)
  Receive Date: 20190501
  Receipt Date: 20190520
  Transmission Date: 20190711
  Serious: Yes (Other)
  Sender: FDA-Public Use
  Company Number: GB-ACCORD-124793

PATIENT
  Age: 79 Year
  Sex: Male

DRUGS (3)
  1. SOTALOL/SOTALOL HYDROCHLORIDE [Suspect]
     Active Substance: SOTALOL\SOTALOL HYDROCHLORIDE
     Indication: PRODUCT USED FOR UNKNOWN INDICATION
     Dosage: SINCE 20 YEARS
     Route: 065
  2. AMITRIPTYLINE [Suspect]
     Active Substance: AMITRIPTYLINE
     Indication: SLEEP DISORDER
     Dosage: 10 MG, UNK
     Route: 048
  3. GAVISCON [Concomitant]
     Active Substance: ALUMINUM HYDROXIDE\MAGNESIUM CARBONATE
     Indication: PRODUCT USED FOR UNKNOWN INDICATION
     Route: 065

REACTIONS (4)
  - Blood pressure systolic increased [Unknown]
  - Feeling abnormal [Unknown]
  - Heart rate increased [Unknown]
  - Extrasystoles [Unknown]

NARRATIVE: CASE EVENT DATE: 20190119
